FAERS Safety Report 11870986 (Version 1)
Quarter: 2015Q4

REPORT INFORMATION
  Report Type: Report from Study
  Country: AU (occurrence: AU)
  Receive Date: 20151228
  Receipt Date: 20151228
  Transmission Date: 20160305
  Serious: Yes (Other)
  Sender: FDA-Public Use
  Company Number: AU-CELGENE-008-21880-13110608

PATIENT
  Age: 70 Year
  Sex: Female
  Weight: 65.7 kg

DRUGS (4)
  1. PLACEBO FOR REVLIMID [Suspect]
     Active Substance: LENALIDOMIDE
  2. REVLIMID [Suspect]
     Active Substance: LENALIDOMIDE
     Indication: DIFFUSE LARGE B-CELL LYMPHOMA
     Route: 048
     Dates: start: 20120103, end: 20131224
  3. REVLIMID [Suspect]
     Active Substance: LENALIDOMIDE
  4. ASPIRINE [Concomitant]
     Active Substance: ASPIRIN
     Indication: PRODUCT USED FOR UNKNOWN INDICATION
     Route: 065

REACTIONS (3)
  - Squamous cell carcinoma of skin [Unknown]
  - Keratoacanthoma [Unknown]
  - Keratoacanthoma [Recovered/Resolved]

NARRATIVE: CASE EVENT DATE: 20130130
